FAERS Safety Report 18239667 (Version 1)
Quarter: 2020Q3

REPORT INFORMATION
  Report Type: Spontaneous
  Country: US (occurrence: US)
  Receive Date: 20200908
  Receipt Date: 20200908
  Transmission Date: 20201103
  Serious: No
  Sender: FDA-Public Use
  Company Number: US-ELI_LILLY_AND_COMPANY-US202008004058

PATIENT
  Age: 69 Year
  Sex: Female

DRUGS (3)
  1. BASAGLAR [Suspect]
     Active Substance: INSULIN GLARGINE
     Indication: TYPE 2 DIABETES MELLITUS
     Dosage: 20 U, DAILY
     Route: 058
     Dates: start: 202003
  2. LOSARTAN. [Concomitant]
     Active Substance: LOSARTAN
     Indication: PRODUCT USED FOR UNKNOWN INDICATION
  3. BASAGLAR [Suspect]
     Active Substance: INSULIN GLARGINE
     Dosage: 20 U, DAILY
     Route: 058

REACTIONS (1)
  - Wrong patient received product [Unknown]

NARRATIVE: CASE EVENT DATE: 202003
